FAERS Safety Report 8715470 (Version 2)
Quarter: 2012Q4

REPORT INFORMATION
  Report Type: 
  Country: JP (occurrence: JP)
  Receive Date: 20120809
  Receipt Date: 20121116
  Transmission Date: 20130627
  Serious: Yes (Hospitalization)
  Sender: FDA-Public Use
  Company Number: JP-AMGEN-JPNCT2012049825

PATIENT
  Age: 75 Year
  Sex: Female
  Weight: 52 kg

DRUGS (13)
  1. DARBEPOETIN ALFA [Suspect]
     Indication: NEPHROGENIC ANAEMIA
     Dosage: 60 mug, q2wk
     Route: 058
     Dates: start: 20110720
  2. DARBEPOETIN ALFA [Suspect]
     Dosage: 40 mug, q2wk
     Route: 058
     Dates: start: 20110817, end: 20110928
  3. DARBEPOETIN ALFA [Suspect]
     Dosage: 60 mug, q4wk
     Route: 058
     Dates: start: 20111012, end: 20120104
  4. BLOPRESS [Concomitant]
     Dosage: UNK
     Route: 048
  5. TANATRIL [Concomitant]
     Dosage: UNK
     Route: 048
  6. AMLODIN [Concomitant]
     Dosage: UNK
     Route: 048
  7. URINORM [Concomitant]
     Dosage: UNK
     Route: 048
  8. KAYEXALATE [Concomitant]
     Dosage: UNK
     Route: 048
  9. SENNOSIDE [Concomitant]
     Dosage: UNK
     Route: 048
  10. ATELEC [Concomitant]
     Dosage: UNK
     Route: 048
  11. FERROMIA [Concomitant]
     Dosage: UNK
     Route: 048
  12. ALFAROL [Concomitant]
     Dosage: UNK
     Route: 048
  13. LIPITOR [Concomitant]
     Dosage: Uncertainty
     Route: 048

REACTIONS (1)
  - Renal failure [Not Recovered/Not Resolved]
